FAERS Safety Report 6863098-7 (Version None)
Quarter: 2010Q3

REPORT INFORMATION
  Report Type: 
  Country: None (occurrence: None)
  Receive Date: 20100721
  Receipt Date: 20100709
  Transmission Date: 20110219
  Serious: Yes (Hospitalization)
  Sender: FDA-Public Use
  Company Number: FR-SANOFI-AVENTIS-200710469FR

PATIENT
  Age: 42 Year
  Sex: Male

DRUGS (6)
  1. LITHIUM CARBONATE [Suspect]
     Dosage: DOSE:10 UNIT(S)
     Route: 048
     Dates: end: 20070101
  2. CYAMEMAZINE [Suspect]
     Indication: AGITATION
     Route: 048
     Dates: start: 20070102
  3. ENOXAPARIN SODIUM [Suspect]
     Indication: THROMBOSIS PROPHYLAXIS
     Dosage: DOSE UNIT: 40 MG/ML
     Route: 058
     Dates: start: 20070102
  4. TRANXENE [Suspect]
     Route: 048
  5. TRANXENE [Suspect]
     Indication: AGITATION
     Route: 048
  6. NO CONCOMITANT DRUG REPORTED [Concomitant]

REACTIONS (13)
  - AGITATION [None]
  - ANTIPSYCHOTIC DRUG LEVEL INCREASED [None]
  - ARRHYTHMIA SUPRAVENTRICULAR [None]
  - AZOTAEMIA [None]
  - BLOOD CREATININE INCREASED [None]
  - BRADYCARDIA [None]
  - DEHYDRATION [None]
  - ELECTROCARDIOGRAM PR PROLONGATION [None]
  - INTENTIONAL OVERDOSE [None]
  - POLYURIA [None]
  - RENAL FAILURE [None]
  - RHABDOMYOLYSIS [None]
  - SINUS ARREST [None]
